FAERS Safety Report 10023380 (Version 1)
Quarter: 2014Q1

REPORT INFORMATION
  Report Type: Spontaneous
  Country: US (occurrence: US)
  Receive Date: 20140320
  Receipt Date: 20140320
  Transmission Date: 20141002
  Serious: No
  Sender: FDA-Public Use
  Company Number: US-009507513-1403USA005653

PATIENT
  Sex: Female
  Weight: 92.97 kg

DRUGS (2)
  1. NUVARING [Suspect]
     Indication: CONTRACEPTION
     Dosage: 1 RING FOR 3 WEEKS FOLLOWED BY WEEK FREE BREAK
     Route: 067
     Dates: start: 201402, end: 20140310
  2. IBUPROFEN [Concomitant]
     Indication: INJURY
     Dosage: UNK

REACTIONS (3)
  - Headache [Unknown]
  - Incorrect product storage [Unknown]
  - Poor quality drug administered [Unknown]
